FAERS Safety Report 16982255 (Version 2)
Quarter: 2019Q4

REPORT INFORMATION
  Report Type: Spontaneous
  Country: DE (occurrence: DE)
  Receive Date: 20191101
  Receipt Date: 20191113
  Transmission Date: 20200122
  Serious: Yes (Life-Threatening, Hospitalization, Other)
  Sender: FDA-Public Use
  Company Number: DE-ASTRAZENECA-2019SF52917

PATIENT

DRUGS (1)
  1. BRILIQUE [Suspect]
     Active Substance: TICAGRELOR
     Route: 048

REACTIONS (4)
  - Lupus hepatitis [Not Recovered/Not Resolved]
  - Hepatic failure [Not Recovered/Not Resolved]
  - Shock haemorrhagic [Unknown]
  - Post procedural haemorrhage [Unknown]
